FAERS Safety Report 5476916-4 (Version None)
Quarter: 2007Q4

REPORT INFORMATION
  Report Type: 
  Country: None (occurrence: None)
  Receive Date: 20071002
  Receipt Date: 20070925
  Transmission Date: 20080405
  Serious: Yes (Hospitalization)
  Sender: FDA-Public Use
  Company Number: 163-20785-07091442

PATIENT
  Age: 69 Year
  Sex: Male

DRUGS (3)
  1. THALOMID [Suspect]
     Indication: PROSTATE CANCER METASTATIC
     Dosage: 200 MG, 1 IN 1 D, ORAL; 100 MG, 2 IN 1 D, ORAL; 50 MG, 1 IN 1 D, ORAL
     Route: 048
     Dates: start: 20070404
  2. THALOMID [Suspect]
     Indication: PROSTATE CANCER METASTATIC
     Dosage: 200 MG, 1 IN 1 D, ORAL; 100 MG, 2 IN 1 D, ORAL; 50 MG, 1 IN 1 D, ORAL
     Route: 048
     Dates: start: 20070516
  3. THALOMID [Suspect]
     Indication: PROSTATE CANCER METASTATIC
     Dosage: 200 MG, 1 IN 1 D, ORAL; 100 MG, 2 IN 1 D, ORAL; 50 MG, 1 IN 1 D, ORAL
     Route: 048
     Dates: start: 20070625

REACTIONS (2)
  - PNEUMONIA ASPIRATION [None]
  - PYREXIA [None]
